FAERS Safety Report 13430698 (Version 1)
Quarter: 2017Q2

REPORT INFORMATION
  Report Type: Spontaneous
  Country: AT (occurrence: AT)
  Receive Date: 20170412
  Receipt Date: 20170412
  Transmission Date: 20170830
  Serious: Yes (Other)
  Sender: FDA-Public Use
  Company Number: AT-AMGEN-AUTSP2017054304

PATIENT
  Age: 53 Year
  Sex: Female

DRUGS (4)
  1. NEULASTA [Suspect]
     Active Substance: PEGFILGRASTIM
     Indication: BREAST CANCER
     Dosage: UNK
     Route: 065
     Dates: start: 20160722, end: 20160722
  2. HERCEPTIN [Suspect]
     Active Substance: TRASTUZUMAB
     Indication: BREAST CANCER
     Dosage: 8 MG/KG, UNK
     Route: 065
     Dates: start: 20160722, end: 20160722
  3. HERCEPTIN [Suspect]
     Active Substance: TRASTUZUMAB
     Dosage: 6 MG/KG, Q3WK
     Route: 065
     Dates: start: 20160816
  4. DOCETAXEL. [Suspect]
     Active Substance: DOCETAXEL
     Indication: BREAST CANCER
     Dosage: 100 MG/ML, Q3WK
     Route: 065
     Dates: start: 20160722, end: 20160929

REACTIONS (5)
  - Arthralgia [Not Recovered/Not Resolved]
  - Leukocytosis [Unknown]
  - Myalgia [Not Recovered/Not Resolved]
  - Cardiac disorder [Unknown]
  - Polyneuropathy [Unknown]

NARRATIVE: CASE EVENT DATE: 20160801
